FAERS Safety Report 6830813-8 (Version None)
Quarter: 2010Q3

REPORT INFORMATION
  Report Type: 
  Country: None (occurrence: None)
  Receive Date: 20100712
  Receipt Date: 20100708
  Transmission Date: 20110219
  Serious: Yes (Death, Other)
  Sender: FDA-Public Use
  Company Number: PHHY2008CA00573

PATIENT
  Sex: Male

DRUGS (5)
  1. SANDOSTATIN LAR [Suspect]
     Indication: CARCINOID TUMOUR
     Dosage: 60 MG EVERY 3 WEEKS
     Route: 030
     Dates: start: 20070618, end: 20100616
  2. INSULIN [Concomitant]
     Dosage: 34U AC BREAKFAST AND SUPPER
  3. INSULIN [Concomitant]
     Dosage: 10 U AC MEALS AND 40 U Q HS
     Route: 030
     Dates: start: 20080128
  4. GABAPENTIN [Concomitant]
     Dosage: 100 MG, TID
  5. GABAPENTIN [Concomitant]
     Dosage: 2 DF, TID

REACTIONS (24)
  - ABDOMINAL PAIN [None]
  - ARTHRALGIA [None]
  - BLOOD GLUCOSE DECREASED [None]
  - BLOOD GLUCOSE INCREASED [None]
  - BLOOD PRESSURE INCREASED [None]
  - CHEST DISCOMFORT [None]
  - COMPUTERISED TOMOGRAM ABNORMAL [None]
  - CONSTIPATION [None]
  - DIABETES MELLITUS INADEQUATE CONTROL [None]
  - DIABETIC NEUROPATHY [None]
  - DIARRHOEA [None]
  - EAR PAIN [None]
  - FLANK PAIN [None]
  - HEART RATE INCREASED [None]
  - HYPOGLYCAEMIA [None]
  - LIMB DISCOMFORT [None]
  - LOSS OF CONSCIOUSNESS [None]
  - NAUSEA [None]
  - PAIN [None]
  - PARAESTHESIA [None]
  - RASH PRURITIC [None]
  - RENAL IMPAIRMENT [None]
  - ROAD TRAFFIC ACCIDENT [None]
  - VOMITING [None]
